FAERS Safety Report 11734162 (Version 1)
Quarter: 2015Q4

REPORT INFORMATION
  Report Type: Spontaneous
  Country: NO (occurrence: NO)
  Receive Date: 20151113
  Receipt Date: 20151113
  Transmission Date: 20160304
  Serious: Yes (Other)
  Sender: FDA-Public Use
  Company Number: NO-WATSON-2015-13057

PATIENT
  Age: 66 Year
  Sex: Female

DRUGS (1)
  1. DOXYCYCLINE. [Suspect]
     Active Substance: DOXYCYCLINE
     Indication: ATYPICAL PNEUMONIA
     Dosage: UNK. PROBABLY 200 MG FIRST DAY, THEN 100 MG THE SECOND DAY
     Route: 048
     Dates: start: 20150526, end: 20150527

REACTIONS (1)
  - Hypersensitivity vasculitis [Recovered/Resolved]

NARRATIVE: CASE EVENT DATE: 20150527
